FAERS Safety Report 6979924-7 (Version None)
Quarter: 2010Q3

REPORT INFORMATION
  Report Type: 
  Country: None (occurrence: None)
  Receive Date: 20100914
  Receipt Date: 20100903
  Transmission Date: 20110219
  Serious: Yes (Hospitalization)
  Sender: FDA-Public Use
  Company Number: US-US-EMD SERONO, INC.-232174K09USA

PATIENT
  Sex: Female
  Weight: 86 kg

DRUGS (13)
  1. REBIF [Suspect]
     Indication: MULTIPLE SCLEROSIS
     Route: 058
     Dates: start: 20040611, end: 20080701
  2. REBIF [Suspect]
     Route: 058
     Dates: start: 20100101, end: 20100301
  3. REBIF [Suspect]
     Route: 058
     Dates: start: 20100823
  4. LEVOTHYROXINE [Concomitant]
     Indication: HYPOTHYROIDISM
     Route: 065
  5. NEXIUM [Concomitant]
     Route: 065
  6. VITAMIN B-12 [Concomitant]
     Route: 065
  7. FOLIC ACID [Concomitant]
     Route: 065
  8. HYDROCHLOROTHIAZIDE [Concomitant]
     Indication: FLUID RETENTION
     Route: 065
  9. POTASSIUM [Concomitant]
     Route: 065
  10. AMBIEN CR [Concomitant]
     Indication: INSOMNIA
     Route: 065
  11. FEXOFENADINE HCL [Concomitant]
     Indication: INSOMNIA
     Route: 065
  12. SEROQUEL [Concomitant]
     Indication: INSOMNIA
     Route: 065
  13. TRIAZOLAM [Concomitant]
     Indication: INSOMNIA
     Route: 065

REACTIONS (6)
  - DEPRESSED MOOD [None]
  - LUNG ABSCESS [None]
  - LUNG CARCINOMA CELL TYPE UNSPECIFIED STAGE II [None]
  - MULTIPLE SCLEROSIS RELAPSE [None]
  - PULMONARY OEDEMA [None]
  - URINARY TRACT INFECTION [None]
